FAERS Safety Report 10958758 (Version 1)
Quarter: 2015Q1

REPORT INFORMATION
  Report Type: Spontaneous
  Country: US (occurrence: US)
  Receive Date: 20150326
  Receipt Date: 20150326
  Transmission Date: 20150721
  Serious: No
  Sender: FDA-Public Use
  Company Number: US-BAYER-2015-042288

PATIENT
  Age: 71 Year
  Sex: Female

DRUGS (8)
  1. TYLENOL EXTRA STRENGTH [Concomitant]
     Active Substance: ACETAMINOPHEN
     Indication: CHRONIC SINUSITIS
     Dosage: UNK,20 YEARS
     Route: 048
  2. VICODIN [Concomitant]
     Active Substance: ACETAMINOPHEN\HYDROCODONE BITARTRATE
     Indication: CHRONIC SINUSITIS
     Dosage: UNK
     Route: 048
  3. ROBAXIN [Concomitant]
     Active Substance: METHOCARBAMOL
     Indication: BACK PAIN
     Dosage: 750 MG, 6 YEARS
     Route: 048
  4. AFRIN NASAL DECONGESTANT [Concomitant]
     Indication: CHRONIC SINUSITIS
     Dosage: 0.05 %, UNK
     Route: 045
  5. CHONDROITIN SULFATE (BOVINE)\GLUCOSAMINE SULFATE [Concomitant]
     Active Substance: CHONDROITIN SULFATE (BOVINE)\GLUCOSAMINE SULFATE
     Indication: OSTEOARTHRITIS
     Dosage: UNK,A FEW YEARS
     Route: 048
  6. ALLEGRA [Concomitant]
     Active Substance: FEXOFENADINE HYDROCHLORIDE
     Indication: CHRONIC SINUSITIS
     Dosage: 180 MG, 10 YEARS
     Route: 048
  7. CHONDROITIN SULFATE (BOVINE)\GLUCOSAMINE SULFATE [Concomitant]
     Active Substance: CHONDROITIN SULFATE (BOVINE)\GLUCOSAMINE SULFATE
     Indication: ARTHRITIS
  8. CLIMARA [Suspect]
     Active Substance: ESTRADIOL
     Indication: HORMONE REPLACEMENT THERAPY
     Dosage: 0.05 MG, WEEKLY
     Route: 062
     Dates: start: 20150210

REACTIONS (3)
  - Skin exfoliation [None]
  - Rash erythematous [None]
  - Product adhesion issue [None]

NARRATIVE: CASE EVENT DATE: 20150210
